FAERS Safety Report 9677689 (Version 1)
Quarter: 2013Q4

REPORT INFORMATION
  Report Type: Spontaneous
  Country: GB (occurrence: GB)
  Receive Date: 20131108
  Receipt Date: 20131108
  Transmission Date: 20140711
  Serious: Yes (Other)
  Sender: FDA-Public Use
  Company Number: GB-JNJFOC-20131100249

PATIENT
  Age: 68 Year
  Sex: Female

DRUGS (3)
  1. STELARA [Suspect]
     Indication: PRODUCT USED FOR UNKNOWN INDICATION
     Route: 058
     Dates: start: 201211
  2. AMLODIPINE [Concomitant]
     Route: 065
  3. GLICLAZIDE [Concomitant]
     Route: 065

REACTIONS (1)
  - Renal impairment [Not Recovered/Not Resolved]
